FAERS Safety Report 6359929-X (Version None)
Quarter: 2009Q3

REPORT INFORMATION
  Report Type: 
  Country: None (occurrence: None)
  Receive Date: 20090817
  Receipt Date: 20070122
  Transmission Date: 20100115
  Serious: Yes (Hospitalization)
  Sender: FDA-Public Use
  Company Number: 20085703

PATIENT
  Sex: Male

DRUGS (5)
  1. LIORESAL [Suspect]
     Indication: MUSCLE SPASTICITY
     Dosage: MCG, DAILY, INTRATHECAL
     Route: 037
  2. BUPIVACAINE [Concomitant]
  3. MORPHINE [Concomitant]
  4. CLONIDINE [Concomitant]
  5. ORAL OPIOIDS [Concomitant]

REACTIONS (4)
  - DRUG INEFFECTIVE [None]
  - OVERDOSE [None]
  - PAIN [None]
  - PARAESTHESIA [None]
